FAERS Safety Report 7622800-7 (Version None)
Quarter: 2011Q3

REPORT INFORMATION
  Report Type: 
  Country: None (occurrence: None)
  Receive Date: 20110712
  Receipt Date: 20110628
  Transmission Date: 20111222
  Serious: Yes (Hospitalization)
  Sender: FDA-Public Use
  Company Number: TPA2011A02576

PATIENT
  Age: 43 Year
  Sex: Male
  Weight: 107.0489 kg

DRUGS (5)
  1. COREG [Concomitant]
  2. ENALAPRIL MALEATE [Concomitant]
  3. EDARBI [Suspect]
     Indication: HYPERTENSION
     Dosage: 80 MG, 1 IN 1 D, PER ORAL
     Route: 048
     Dates: start: 20110510
  4. DIOVAN [Concomitant]
  5. TEKTURNA [Concomitant]

REACTIONS (1)
  - BRONCHITIS [None]
